FAERS Safety Report 20737977 (Version 1)
Quarter: 2022Q2

REPORT INFORMATION
  Report Type: Spontaneous
  Country: US (occurrence: None)
  Receive Date: 20220422
  Receipt Date: 20220422
  Transmission Date: 20220721
  Serious: Yes (Death)
  Sender: FDA-Public Use
  Company Number: US-ADAMAS Pharma-ADM202204-000732

PATIENT
  Age: 82 Year
  Sex: Male

DRUGS (2)
  1. OSMOLEX ER [Suspect]
     Active Substance: AMANTADINE
     Indication: Parkinson^s disease
     Dosage: 30 DOSAGE FORMS
  2. OSMOLEX ER [Suspect]
     Active Substance: AMANTADINE
     Dosage: 30 DOSAGE FORMS

REACTIONS (1)
  - Death [Fatal]
